FAERS Safety Report 6853901-9 (Version None)
Quarter: 2010Q3

REPORT INFORMATION
  Report Type: 
  Country: None (occurrence: None)
  Receive Date: 20100717
  Receipt Date: 20071219
  Transmission Date: 20110219
  Serious: No
  Sender: FDA-Public Use
  Company Number: US-PFIZER INC-2007108340

PATIENT
  Sex: Male
  Weight: 102.27 kg

DRUGS (4)
  1. CHANTIX [Suspect]
     Indication: SMOKING CESSATION THERAPY
     Dates: start: 20071123, end: 20071216
  2. CLARITIN [Concomitant]
  3. XANAX [Concomitant]
  4. PRILOSEC [Concomitant]

REACTIONS (5)
  - DRUG DOSE OMISSION [None]
  - ENERGY INCREASED [None]
  - FATIGUE [None]
  - INSOMNIA [None]
  - UNEVALUABLE EVENT [None]
